FAERS Safety Report 4644234-X (Version None)
Quarter: 2005Q2

REPORT INFORMATION
  Report Type: 
  Country: None (occurrence: None)
  Receive Date: 20050331
  Receipt Date: 20050127
  Transmission Date: 20051028
  Serious: No
  Sender: FDA-Public Use
  Company Number: 05P-163-0285409-00

PATIENT
  Age: 43 Year
  Sex: Male
  Weight: 81.6475 kg

DRUGS (4)
  1. HUMIRA [Suspect]
     Indication: RHEUMATOID ARTHRITIS
     Dosage: 40 MG, 1 IN 2 WK, SUBCUTANEOUS
     Route: 058
     Dates: start: 20041101, end: 20050112
  2. PREDNISONE [Concomitant]
  3. NAPROXEN SODIUM [Concomitant]
  4. ASCORBIC ACID [Concomitant]

REACTIONS (6)
  - ACNE [None]
  - ARTHRALGIA [None]
  - ARTHRITIS [None]
  - FEELING COLD [None]
  - NAUSEA [None]
  - RASH ERYTHEMATOUS [None]
